FAERS Safety Report 8551576-4 (Version None)
Quarter: 2012Q3

REPORT INFORMATION
  Report Type: 
  Country: None (occurrence: None)
  Receive Date: 20120730
  Receipt Date: 20120726
  Transmission Date: 20120928
  Serious: Yes (Other)
  Sender: FDA-Public Use
  Company Number: RU-BAYER-2012-075409

PATIENT
  Age: 31 Year
  Sex: Female

DRUGS (1)
  1. YAZ [Suspect]
     Indication: CONTRACEPTION
     Dosage: 1 DF, QD
     Route: 048
     Dates: start: 20120708, end: 20120715

REACTIONS (4)
  - SYNCOPE [None]
  - ASTHENIA [None]
  - TACHYCARDIA [None]
  - BLOOD PRESSURE INCREASED [None]
